FAERS Safety Report 24644374 (Version 1)
Quarter: 2024Q4

REPORT INFORMATION
  Report Type: Spontaneous
  Country: US (occurrence: US)
  Receive Date: 20241120
  Receipt Date: 20241120
  Transmission Date: 20250115
  Serious: No
  Sender: ALVOGEN
  Company Number: US-ALVOGEN-2024093308

PATIENT
  Sex: Female

DRUGS (1)
  1. TERIPARATIDE [Suspect]
     Active Substance: TERIPARATIDE
     Indication: Osteoporosis
     Dosage: STRENGTH: 250 MCG/ML?ONGOING
     Route: 058
     Dates: start: 202301

REACTIONS (4)
  - Muscular weakness [Unknown]
  - Groin pain [Unknown]
  - Pain in extremity [Unknown]
  - Arthralgia [Unknown]
